FAERS Safety Report 17588489 (Version 3)
Quarter: 2020Q2

REPORT INFORMATION
  Report Type: Not Available
  Country: US (occurrence: US)
  Receive Date: 20200326
  Receipt Date: 20200420
  Transmission Date: 20200713
  Serious: Yes (Death, Hospitalization)
  Sender: FDA-Public Use
  Company Number: US-NEUROCRINE BIOSCIENCES INC.-2020NBI00959

PATIENT
  Sex: Male

DRUGS (1)
  1. INGREZZA [Suspect]
     Active Substance: VALBENAZINE
     Indication: TARDIVE DYSKINESIA
     Route: 048
     Dates: start: 20190110, end: 20200314

REACTIONS (9)
  - Asthenia [Unknown]
  - Tourette^s disorder [Unknown]
  - Decreased appetite [Unknown]
  - Fall [Unknown]
  - Dysphagia [Unknown]
  - Movement disorder [Unknown]
  - Insomnia [Unknown]
  - Pneumonia aspiration [Fatal]
  - Behaviour disorder [Unknown]
